FAERS Safety Report 9406894 (Version 2)
Quarter: 2013Q3

REPORT INFORMATION
  Report Type: Report from Study
  Country: CA (occurrence: CA)
  Receive Date: 20130718
  Receipt Date: 20130829
  Transmission Date: 20140515
  Serious: Yes (Death)
  Sender: FDA-Public Use
  Company Number: PHHY2013CA076176

PATIENT
  Age: 49 Year
  Sex: Male

DRUGS (17)
  1. CLOZARIL [Suspect]
     Dosage: UNK
     Dates: start: 19940703
  2. CLOZARIL [Suspect]
     Dosage: UNK
     Dates: start: 200512, end: 20130714
  3. EPIVAL [Concomitant]
     Dosage: UNK
  4. RISPERIDONE [Concomitant]
     Dosage: UNK
  5. CHLORPROMAZINE [Concomitant]
     Dosage: UNK
  6. INDERAL [Concomitant]
     Dosage: UNK
  7. WELLBUTRIN [Concomitant]
     Dosage: UNK
  8. COGENTIN [Concomitant]
     Dosage: UNK
  9. ALLOPURINOL [Concomitant]
     Dosage: UNK
  10. RANITIDINE [Concomitant]
     Dosage: UNK
  11. PANTOLOC [Concomitant]
     Dosage: UNK
  12. SENOKOT [Concomitant]
     Dosage: UNK
  13. COLACE [Concomitant]
     Dosage: UNK
  14. LACTULOSE [Concomitant]
     Dosage: UNK
  15. RESTORALAX [Concomitant]
     Dosage: UNK
  16. LIPITOR [Concomitant]
     Dosage: UNK
  17. TYLENOL [Concomitant]
     Indication: ARTHRITIS
     Dosage: UNK

REACTIONS (1)
  - Death [Fatal]
